FAERS Safety Report 4696140-2 (Version None)
Quarter: 2005Q2

REPORT INFORMATION
  Report Type: 
  Country: None (occurrence: None)
  Receive Date: 20050620
  Receipt Date: 20050607
  Transmission Date: 20051028
  Serious: Yes (Death, Hospitalization)
  Sender: FDA-Public Use
  Company Number: 2004201383DK

PATIENT
  Sex: Female

DRUGS (2)
  1. MINPROSTIN (DINOPROSTONE) [Suspect]
     Indication: INDUCED LABOUR
     Dosage: 3 MG (3 MG, FIRST DOSE AT 10:20 A. M.), VAGINAL
     Route: 067
     Dates: start: 20030414, end: 20030414
  2. METHYLDOPA [Concomitant]

REACTIONS (12)
  - BRADYCARDIA [None]
  - CAESAREAN SECTION [None]
  - DEPRESSED LEVEL OF CONSCIOUSNESS [None]
  - DRUG EXPOSURE DURING PREGNANCY [None]
  - FALL [None]
  - FEELING ABNORMAL [None]
  - NAUSEA [None]
  - PAIN [None]
  - PALLOR [None]
  - PRE-ECLAMPSIA [None]
  - STILLBIRTH [None]
  - UTERINE RUPTURE [None]
